FAERS Safety Report 11965708 (Version 4)
Quarter: 2017Q3

REPORT INFORMATION
  Report Type: Report from Study
  Country: US (occurrence: US)
  Receive Date: 20160127
  Receipt Date: 20170710
  Transmission Date: 20171127
  Serious: Yes (Death, Hospitalization, Other)
  Sender: FDA-Public Use
  Company Number: PHEH2016US001823

PATIENT
  Age: 60 Year
  Sex: Male

DRUGS (1)
  1. GILENYA [Suspect]
     Active Substance: FINGOLIMOD HYDROCHLORIDE
     Indication: RELAPSING-REMITTING MULTIPLE SCLEROSIS
     Dosage: 0.5 MG, QD
     Route: 048
     Dates: start: 201112, end: 201607

REACTIONS (10)
  - Brain herniation [Fatal]
  - Skin lesion [Unknown]
  - Metastases to bone [Unknown]
  - Fall [Unknown]
  - Metastases to liver [Unknown]
  - Skin haemorrhage [Unknown]
  - Deep vein thrombosis [Unknown]
  - Haemorrhage intracranial [Fatal]
  - Neuroendocrine carcinoma of the skin [Recovered/Resolved]
  - Lymphocyte count decreased [Unknown]

NARRATIVE: CASE EVENT DATE: 201511
